FAERS Safety Report 5489126-1 (Version None)
Quarter: 2007Q4

REPORT INFORMATION
  Report Type: 
  Country: None (occurrence: None)
  Receive Date: 20071005
  Receipt Date: 20070926
  Transmission Date: 20080405
  Serious: Yes (Other)
  Sender: FDA-Public Use
  Company Number: PHEH2007US10915

PATIENT
  Age: 60 Year
  Sex: Female
  Weight: 77.6 kg

DRUGS (6)
  1. TEKTURNA [Suspect]
     Indication: HYPERTENSION
     Dosage: 150 MG, QD, ORAL
     Route: 048
     Dates: start: 20070718, end: 20070720
  2. ALPRAZOLAM [Concomitant]
  3. PREMARIN [Concomitant]
  4. PREVACID [Concomitant]
  5. ACETYLSALICYLIC ACID SRT [Concomitant]
  6. CARTIA XT [Concomitant]

REACTIONS (4)
  - ANGIOEDEMA [None]
  - DYSARTHRIA [None]
  - LIP OEDEMA [None]
  - PRURITUS [None]
